FAERS Safety Report 11706030 (Version 6)
Quarter: 2025Q1

REPORT INFORMATION
  Report Type: Spontaneous
  Country: US (occurrence: US)
  Receive Date: 20151106
  Receipt Date: 20250128
  Transmission Date: 20250409
  Serious: Yes (Hospitalization, Other)
  Sender: PFIZER
  Company Number: US-PFIZER INC-2015376881

PATIENT
  Age: 53 Year
  Sex: Female
  Weight: 69 kg

DRUGS (2)
  1. PREMARIN [Suspect]
     Active Substance: ESTROGENS, CONJUGATED
     Indication: Oestrogen replacement therapy
     Dosage: 1.25 MG, 1X/DAY
     Dates: start: 1986, end: 1986
  2. PREMARIN [Suspect]
     Active Substance: ESTROGENS, CONJUGATED

REACTIONS (4)
  - Myocardial infarction [Unknown]
  - Supraventricular tachycardia [Unknown]
  - Feeling drunk [Unknown]
  - Brain fog [Unknown]

NARRATIVE: CASE EVENT DATE: 20151023
